FAERS Safety Report 17985486 (Version 3)
Quarter: 2021Q1

REPORT INFORMATION
  Report Type: Report from Study
  Country: US (occurrence: US)
  Receive Date: 20200706
  Receipt Date: 20210315
  Transmission Date: 20210419
  Serious: Yes (Other)
  Sender: FDA-Public Use
  Company Number: US-SHIRE-US202021212

PATIENT
  Age: 40 Year
  Sex: Female

DRUGS (5)
  1. 643 (LANADELUMAB) [Suspect]
     Active Substance: LANADELUMAB
     Indication: PRODUCT USED FOR UNKNOWN INDICATION
     Dosage: 300 MILLIGRAM
     Route: 058
     Dates: start: 20210208
  2. FIRAZYR [Suspect]
     Active Substance: ICATIBANT ACETATE
     Indication: PRODUCT USED FOR UNKNOWN INDICATION
     Dosage: 30 MILLIGRAM, PRN
     Route: 058
     Dates: start: 202006
  3. FIRAZYR [Suspect]
     Active Substance: ICATIBANT ACETATE
     Dosage: 300 MILLIGRAM
     Route: 058
     Dates: start: 202101
  4. FIRAZYR [Suspect]
     Active Substance: ICATIBANT ACETATE
     Indication: PRODUCT USED FOR UNKNOWN INDICATION
     Dosage: 30 MILLIGRAM, PRN
     Route: 058
     Dates: start: 202006
  5. FIRAZYR [Suspect]
     Active Substance: ICATIBANT ACETATE
     Dosage: 300 MILLIGRAM
     Route: 058
     Dates: start: 202101

REACTIONS (6)
  - Dizziness [Recovered/Resolved]
  - Hereditary angioedema [Unknown]
  - Haematochezia [Unknown]
  - Headache [Recovered/Resolved]
  - Pneumonia [Unknown]
  - Emotional distress [Unknown]

NARRATIVE: CASE EVENT DATE: 20200629
